FAERS Safety Report 18099022 (Version 2)
Quarter: 2020Q4

REPORT INFORMATION
  Report Type: Report from Study
  Country: US (occurrence: US)
  Receive Date: 20200731
  Receipt Date: 20201110
  Transmission Date: 20210113
  Serious: Yes (Hospitalization)
  Sender: FDA-Public Use
  Company Number: US-EISAI MEDICAL RESEARCH-EC-2020-076338

PATIENT
  Age: 68 Year
  Sex: Female
  Weight: 84 kg

DRUGS (25)
  1. LENVIMA [Suspect]
     Active Substance: LENVATINIB
     Indication: UTERINE CANCER
     Route: 048
     Dates: start: 20200805, end: 202009
  2. LENVIMA [Suspect]
     Active Substance: LENVATINIB
     Route: 048
     Dates: start: 20200925, end: 2020
  3. PROCHLORPERAZINE. [Concomitant]
     Active Substance: PROCHLORPERAZINE
  4. ENALAPRIL [Concomitant]
     Active Substance: ENALAPRIL
  5. TYLENOL [Concomitant]
     Active Substance: ACETAMINOPHEN
  6. LENVIMA [Suspect]
     Active Substance: LENVATINIB
     Indication: ENDOMETRIAL NEOPLASM
     Route: 048
     Dates: start: 20200613, end: 20200622
  7. ASPIRIN. [Concomitant]
     Active Substance: ASPIRIN
  8. HYDROCHLOROTHIAZIDE. [Concomitant]
     Active Substance: HYDROCHLOROTHIAZIDE
  9. ATENOLOL. [Concomitant]
     Active Substance: ATENOLOL
  10. INCRUSE-ELLIPTA [Concomitant]
  11. TAMSULOSIN [Concomitant]
     Active Substance: TAMSULOSIN
  12. MILK THISTLE [Concomitant]
     Active Substance: DIETARY SUPPLEMENT\HERBALS\MILK THISTLE
  13. KLOR-CON [Concomitant]
     Active Substance: POTASSIUM CHLORIDE
  14. MELOXICAM. [Concomitant]
     Active Substance: MELOXICAM
  15. FINASTERIDE. [Concomitant]
     Active Substance: FINASTERIDE
  16. APRISO [Concomitant]
     Active Substance: MESALAMINE
  17. SIMVASTATIN. [Concomitant]
     Active Substance: SIMVASTATIN
  18. ONDANSETRON [Concomitant]
     Active Substance: ONDANSETRON
  19. BREO ELLIPTA [Concomitant]
     Active Substance: FLUTICASONE FUROATE\VILANTEROL TRIFENATATE
  20. ADVIL [Concomitant]
     Active Substance: IBUPROFEN
  21. B COMPLEX NUMBER 1 [Concomitant]
  22. LEVOTHYROXINE SODIUM. [Concomitant]
     Active Substance: LEVOTHYROXINE SODIUM
  23. LENVIMA [Suspect]
     Active Substance: LENVATINIB
     Dosage: FOR 4-5 DAYS, THEN OFF FOR 2-3 DAYS
     Route: 048
     Dates: start: 2020
  24. MONTELUKAST [Concomitant]
     Active Substance: MONTELUKAST SODIUM
  25. HYDROCORTISONE-PRAMOXI [Concomitant]

REACTIONS (14)
  - Hypertension [Unknown]
  - Chest pain [Unknown]
  - Gastrointestinal tract irritation [Not Recovered/Not Resolved]
  - General physical health deterioration [Unknown]
  - Bedridden [Unknown]
  - Fatigue [Unknown]
  - Diarrhoea [Unknown]
  - Feeling abnormal [Unknown]
  - Dysphonia [Not Recovered/Not Resolved]
  - Vulvovaginal discomfort [Not Recovered/Not Resolved]
  - Decreased appetite [Unknown]
  - Nausea [Unknown]
  - Vomiting [Unknown]
  - Arthralgia [Unknown]

NARRATIVE: CASE EVENT DATE: 2020
